FAERS Safety Report 11868312 (Version 1)
Quarter: 2015Q4

REPORT INFORMATION
  Report Type: Spontaneous
  Country: CA (occurrence: CA)
  Receive Date: 20151224
  Receipt Date: 20151224
  Transmission Date: 20160305
  Serious: Yes (Other)
  Sender: FDA-Public Use
  Company Number: CA-GLAXOSMITHKLINE-A1080953A

PATIENT
  Sex: Female

DRUGS (7)
  1. PREDNISONE. [Concomitant]
     Active Substance: PREDNISONE
     Indication: PRODUCT USED FOR UNKNOWN INDICATION
     Dosage: UNK
  2. PREDNISONE. [Concomitant]
     Active Substance: PREDNISONE
     Dosage: 10MG, Q AM
  3. BENLYSTA [Suspect]
     Active Substance: BELIMUMAB
     Dosage: 635 MG, UNK
  4. PREDNISONE. [Concomitant]
     Active Substance: PREDNISONE
     Dosage: 5 MG, Q PM
  5. BENLYSTA [Suspect]
     Active Substance: BELIMUMAB
     Dosage: 635 MG, Q4 WEEKS
  6. BENLYSTA [Suspect]
     Active Substance: BELIMUMAB
     Indication: SYSTEMIC LUPUS ERYTHEMATOSUS
     Dosage: 620 MG, WEEK 0, 2, 4 THEN EVERY 4 WEEKS
     Route: 042
     Dates: start: 20111208
  7. BENLYSTA [Suspect]
     Active Substance: BELIMUMAB
     Dosage: 635 MG, 0, 2, 4 WEEKS THEN EVERY 4 WEEKS
     Route: 042
     Dates: start: 20111208

REACTIONS (5)
  - Pain [Unknown]
  - Uterine leiomyoma [Unknown]
  - Hospitalisation [Unknown]
  - Haematuria [Unknown]
  - Rash [Unknown]
